FAERS Safety Report 19827529 (Version 2)
Quarter: 2021Q4

REPORT INFORMATION
  Report Type: Spontaneous
  Country: US (occurrence: US)
  Receive Date: 20210914
  Receipt Date: 20211006
  Transmission Date: 20220303
  Serious: Yes (Other)
  Sender: FDA-Public Use
  Company Number: US-GLAXOSMITHKLINE-US2021GSK192131

PATIENT
  Age: 29 Year
  Sex: Female

DRUGS (8)
  1. LAMOTRIGINE [Interacting]
     Active Substance: LAMOTRIGINE
     Indication: Seizure
     Dosage: UNK
  2. LACOSAMIDE [Interacting]
     Active Substance: LACOSAMIDE
     Indication: Seizure
     Dosage: UNK
  3. LACOSAMIDE [Interacting]
     Active Substance: LACOSAMIDE
     Dosage: UNK DOSAGE WAS DOUBLED
  4. LEVETIRACETAM [Suspect]
     Active Substance: LEVETIRACETAM
     Indication: Seizure
     Dosage: UNK
  5. LEVETIRACETAM [Suspect]
     Active Substance: LEVETIRACETAM
     Dosage: UNK  LOW DOSE
  6. PREDNISONE [Concomitant]
     Active Substance: PREDNISONE
     Indication: Seizure
     Dosage: UNK
     Route: 048
  7. DIPHENHYDRAMINE [Concomitant]
     Active Substance: DIPHENHYDRAMINE
     Indication: Seizure
     Dosage: UNK
  8. TRIAMCINOLONE [Concomitant]
     Active Substance: TRIAMCINOLONE
     Indication: Seizure
     Dosage: UNK
     Route: 061

REACTIONS (23)
  - Drug reaction with eosinophilia and systemic symptoms [Recovered/Resolved]
  - Cross sensitivity reaction [Recovered/Resolved]
  - Drug eruption [Recovered/Resolved]
  - Rash morbilliform [Recovered/Resolved]
  - Pyrexia [Recovered/Resolved]
  - Lymphadenopathy [Recovered/Resolved]
  - Arthralgia [Recovered/Resolved]
  - Tachycardia [Recovered/Resolved]
  - Blood pressure decreased [Recovered/Resolved]
  - Papule [Recovered/Resolved]
  - Skin plaque [Recovered/Resolved]
  - Skin lesion [Recovered/Resolved]
  - Meningitis [Recovered/Resolved]
  - Stevens-Johnson syndrome [Recovered/Resolved]
  - Rash [Recovered/Resolved]
  - Leukocytosis [Recovered/Resolved]
  - Inflammatory marker increased [Recovered/Resolved]
  - Red blood cell sedimentation rate increased [Recovered/Resolved]
  - C-reactive protein increased [Recovered/Resolved]
  - Transaminases increased [Recovered/Resolved]
  - Alanine aminotransferase increased [Recovered/Resolved]
  - Aspartate aminotransferase increased [Recovered/Resolved]
  - Drug interaction [Unknown]
